FAERS Safety Report 17988873 (Version 2)
Quarter: 2020Q3

REPORT INFORMATION
  Report Type: Spontaneous
  Country: US (occurrence: US)
  Receive Date: 20200707
  Receipt Date: 20200804
  Transmission Date: 20201103
  Serious: No
  Sender: FDA-Public Use
  Company Number: US-ELI_LILLY_AND_COMPANY-US202007002129

PATIENT
  Sex: Male

DRUGS (1)
  1. TRULICITY [Suspect]
     Active Substance: DULAGLUTIDE
     Indication: PRODUCT USED FOR UNKNOWN INDICATION
     Dosage: 0.75 MG, WEEKLY (1/W)
     Route: 058
     Dates: start: 2018

REACTIONS (5)
  - Injection site mass [Not Recovered/Not Resolved]
  - Injection site injury [Recovering/Resolving]
  - Injection site haemorrhage [Recovering/Resolving]
  - Accidental underdose [Unknown]
  - Injection site pain [Recovering/Resolving]
